FAERS Safety Report 14368204 (Version 2)
Quarter: 2018Q1

REPORT INFORMATION
  Report Type: Spontaneous
  Country: US (occurrence: US)
  Receive Date: 20180109
  Receipt Date: 20180214
  Transmission Date: 20180509
  Serious: No
  Sender: FDA-Public Use
  Company Number: US-PFIZER INC-2018009627

PATIENT

DRUGS (1)
  1. SERTRALINE HCL [Suspect]
     Active Substance: SERTRALINE HYDROCHLORIDE
     Indication: DEPRESSION
     Dosage: 50 MG, 1X/DAY
     Dates: start: 2016

REACTIONS (2)
  - Headache [Unknown]
  - Drug ineffective [Unknown]

NARRATIVE: CASE EVENT DATE: 2016
